FAERS Safety Report 24242397 (Version 1)
Quarter: 2024Q3

REPORT INFORMATION
  Report Type: Spontaneous
  Country: US (occurrence: US)
  Receive Date: 20240823
  Receipt Date: 20240823
  Transmission Date: 20241016
  Serious: Yes (Other)
  Sender: BAXTER
  Company Number: US-BAXTER-2024BAX023362

PATIENT
  Age: 68 Year
  Sex: Male

DRUGS (1)
  1. NEXTERONE [Suspect]
     Active Substance: AMIODARONE HYDROCHLORIDE
     Route: 065

REACTIONS (1)
  - Acute interstitial pneumonitis [Recovered/Resolved]
